FAERS Safety Report 7643863-9 (Version None)
Quarter: 2011Q3

REPORT INFORMATION
  Report Type: 
  Country: None (occurrence: None)
  Receive Date: 20110729
  Receipt Date: 20100920
  Transmission Date: 20111222
  Serious: No
  Sender: FDA-Public Use
  Company Number: US-GLAXOSMITHKLINE-A0883320A

PATIENT
  Sex: Male

DRUGS (2)
  1. SUMATRIPTAN SUCCINATE [Suspect]
     Indication: MIGRAINE
     Dosage: 1TAB SINGLE DOSE
     Route: 048
     Dates: start: 20100910
  2. SUMATRIPTAN SUCCINATE [Suspect]
     Dosage: 1TAB AS DIRECTED
     Route: 048

REACTIONS (1)
  - DRUG INEFFECTIVE [None]
